FAERS Safety Report 23665637 (Version 1)
Quarter: 2024Q1

REPORT INFORMATION
  Report Type: Spontaneous
  Country: CA (occurrence: CA)
  Receive Date: 20240323
  Receipt Date: 20240323
  Transmission Date: 20240410
  Serious: Yes (Other)
  Sender: FDA-Public Use
  Company Number: CA-TEVA-VS-3173153

PATIENT
  Age: 60 Year
  Sex: Male
  Weight: 105 kg

DRUGS (5)
  1. METHOTREXATE SODIUM [Suspect]
     Active Substance: METHOTREXATE SODIUM
     Indication: Product used for unknown indication
     Route: 058
  2. DUTASTERIDE [Concomitant]
     Active Substance: DUTASTERIDE
     Route: 065
  3. HADLIMA [Concomitant]
     Active Substance: ADALIMUMAB-BWWD
     Route: 065
  4. HADLIMA [Concomitant]
     Active Substance: ADALIMUMAB-BWWD
     Route: 065
  5. PREDNISONE [Concomitant]
     Active Substance: PREDNISONE
     Route: 065

REACTIONS (3)
  - Interstitial lung disease [Unknown]
  - Off label use [Unknown]
  - Rheumatoid arthritis [Unknown]
